FAERS Safety Report 7135790-0 (Version None)
Quarter: 2010Q4

REPORT INFORMATION
  Report Type: 
  Country: None (occurrence: None)
  Receive Date: 20101203
  Receipt Date: 20101124
  Transmission Date: 20110411
  Serious: Yes (Other)
  Sender: FDA-Public Use
  Company Number: JP-PFIZER INC-2010157272

PATIENT
  Age: 84 Year
  Sex: Female

DRUGS (2)
  1. LYRICA [Suspect]
     Indication: PAIN IN EXTREMITY
     Dosage: 50 MG/DAY
     Route: 048
  2. LYRICA [Suspect]
     Dosage: 25 MG/DAY
     Route: 048

REACTIONS (3)
  - ALTERED STATE OF CONSCIOUSNESS [None]
  - MUSCULAR WEAKNESS [None]
  - SOMNOLENCE [None]
